FAERS Safety Report 11333398 (Version 1)
Quarter: 2015Q3

REPORT INFORMATION
  Report Type: Spontaneous
  Country: US (occurrence: US)
  Receive Date: 20150803
  Receipt Date: 20150803
  Transmission Date: 20151125
  Serious: Yes (Other)
  Sender: FDA-Public Use
  Company Number: US-ELI_LILLY_AND_COMPANY-US200709004880

PATIENT
  Sex: Male
  Weight: 72.56 kg

DRUGS (1)
  1. OLANZAPINE. [Suspect]
     Active Substance: OLANZAPINE
     Indication: MENTAL DISORDER
     Dates: start: 2002

REACTIONS (2)
  - Cardiac failure [Not Recovered/Not Resolved]
  - Pancreatitis [Not Recovered/Not Resolved]
